FAERS Safety Report 5441467-X (Version None)
Quarter: 2007Q3

REPORT INFORMATION
  Report Type: 
  Country: None (occurrence: None)
  Receive Date: 20070904
  Receipt Date: 20070828
  Transmission Date: 20080115
  Serious: Yes (Other)
  Sender: FDA-Public Use
  Company Number: US-ELI_LILLY_AND_COMPANY-US200706005284

PATIENT
  Age: 22 Year
  Sex: Male

DRUGS (2)
  1. ZYPREXA [Suspect]
     Indication: PSYCHOTIC DISORDER
     Dosage: 10 MG, DAILY (1/D)
     Route: 048
  2. ZYPREXA [Suspect]
     Dosage: 5 MG, DAILY (1/D)
     Route: 048
     Dates: start: 20070201

REACTIONS (8)
  - ARRHYTHMIA [None]
  - EMOTIONAL DISORDER [None]
  - FLUSHING [None]
  - HYPOTHYROIDISM [None]
  - INJURY [None]
  - NERVOUS SYSTEM DISORDER [None]
  - SOCIAL PROBLEM [None]
  - SUICIDE ATTEMPT [None]
